FAERS Safety Report 10677729 (Version 4)
Quarter: 2016Q2

REPORT INFORMATION
  Report Type: Spontaneous
  Country: US (occurrence: US)
  Receive Date: 20141229
  Receipt Date: 20160628
  Transmission Date: 20160815
  Serious: Yes (Hospitalization, Other)
  Sender: FDA-Public Use
  Company Number: US-LUNDBECK-DKLU1107124

PATIENT
  Age: 3 Year
  Sex: Male
  Weight: 11 kg

DRUGS (8)
  1. DIAZEPAM. [Concomitant]
     Active Substance: DIAZEPAM
     Indication: PRODUCT USED FOR UNKNOWN INDICATION
     Route: 048
     Dates: start: 20151214
  2. KEPPRA [Concomitant]
     Active Substance: LEVETIRACETAM
     Indication: PRODUCT USED FOR UNKNOWN INDICATION
     Route: 048
     Dates: start: 20151214
  3. ONFI [Concomitant]
     Active Substance: CLOBAZAM
     Indication: PRODUCT USED FOR UNKNOWN INDICATION
     Route: 065
     Dates: start: 20151214, end: 20160620
  4. SABRIL [Suspect]
     Active Substance: VIGABATRIN
     Dosage: TAPERING SCHEDULE
     Route: 065
  5. SABRIL [Suspect]
     Active Substance: VIGABATRIN
     Indication: INFANTILE SPASMS
     Route: 065
     Dates: start: 20150903
  6. SABRIL [Suspect]
     Active Substance: VIGABATRIN
     Route: 065
  7. SABRIL [Suspect]
     Active Substance: VIGABATRIN
     Route: 048
  8. ONFI [Concomitant]
     Active Substance: CLOBAZAM
     Route: 065
     Dates: start: 20160620

REACTIONS (4)
  - Pneumonia [Unknown]
  - Restlessness [Unknown]
  - Drug withdrawal convulsions [Unknown]
  - Seizure [Not Recovered/Not Resolved]

NARRATIVE: CASE EVENT DATE: 201606
